FAERS Safety Report 10748741 (Version 1)
Quarter: 2015Q1

REPORT INFORMATION
  Report Type: Spontaneous
  Country: DE (occurrence: DE)
  Receive Date: 20150129
  Receipt Date: 20150129
  Transmission Date: 20150721
  Serious: Yes (Other)
  Sender: FDA-Public Use
  Company Number: GXKR2015DE000677

PATIENT
  Sex: Female
  Weight: 78 kg

DRUGS (2)
  1. CLINDAMYCIN 1A PHARMA [Suspect]
     Active Substance: CLINDAMYCIN HYDROCHLORIDE
     Indication: TOOTH INJURY
     Dosage: 600 MG, TID
     Route: 048
     Dates: start: 20141209, end: 20141213
  2. CLINDAMYCIN 1A PHARMA [Suspect]
     Active Substance: CLINDAMYCIN HYDROCHLORIDE
     Indication: PULPITIS DENTAL
     Dosage: 600 MG, TID
     Route: 048
     Dates: start: 20141203, end: 20141207

REACTIONS (7)
  - Diarrhoea [Not Recovered/Not Resolved]
  - Nausea [Not Recovered/Not Resolved]
  - Headache [Not Recovered/Not Resolved]
  - Pain in extremity [Not Recovered/Not Resolved]
  - Fatigue [Not Recovered/Not Resolved]
  - Abdominal pain upper [Not Recovered/Not Resolved]
  - Weight decreased [Not Recovered/Not Resolved]

NARRATIVE: CASE EVENT DATE: 20141222
